FAERS Safety Report 5508622-1 (Version None)
Quarter: 2007Q4

REPORT INFORMATION
  Report Type: 
  Country: None (occurrence: None)
  Receive Date: 20071107
  Receipt Date: 20071105
  Transmission Date: 20080405
  Serious: Yes (Death, Other)
  Sender: FDA-Public Use
  Company Number: US-BRISTOL-MYERS SQUIBB COMPANY-13939814

PATIENT
  Age: 43 Year
  Sex: Female
  Weight: 133 kg

DRUGS (18)
  1. PERCOCET [Suspect]
     Dates: end: 20070901
  2. TRAZODONE HCL [Suspect]
     Dates: end: 20070901
  3. CYCLOBENZAPRINE HCL [Suspect]
     Dates: end: 20070901
  4. THEOPHYLLINE [Suspect]
     Dates: end: 20070901
  5. KADIAN [Suspect]
     Indication: BACK PAIN
     Dosage: DOSE 1 CAPSULE(30 MG) DAILY.
     Route: 048
     Dates: start: 20070829, end: 20070801
  6. ZOLOFT [Suspect]
     Dates: end: 20070901
  7. VALIUM [Suspect]
     Dates: end: 20070901
  8. AMITRIPTYLINE HCL [Suspect]
     Dates: end: 20070901
  9. ZOLPIDEM TARTRATE [Suspect]
     Dates: end: 20070901
  10. PROPOXYPHENE HYDROCHLORIDE [Suspect]
     Dates: end: 20070901
  11. LYRICA [Concomitant]
     Dates: end: 20070101
  12. IMITREX [Concomitant]
     Dates: end: 20070101
  13. PREVACID [Concomitant]
     Dates: end: 20070101
  14. BENICAR [Concomitant]
     Dates: end: 20070101
  15. VYTORIN [Concomitant]
     Dates: end: 20070101
  16. LEVSIN [Concomitant]
     Dates: end: 20070101
  17. NAPROSYN [Concomitant]
     Dates: end: 20070101
  18. ATROPINE [Concomitant]
     Dates: end: 20070901

REACTIONS (5)
  - DEATH [None]
  - DEHYDRATION [None]
  - PULMONARY CONGESTION [None]
  - SOMNOLENCE [None]
  - VOMITING [None]
